FAERS Safety Report 6267484-8 (Version None)
Quarter: 2009Q3

REPORT INFORMATION
  Report Type: 
  Country: None (occurrence: None)
  Receive Date: 20090714
  Receipt Date: 20090703
  Transmission Date: 20100115
  Serious: Yes (Other)
  Sender: FDA-Public Use
  Company Number: US-JNJFOC-20090702672

PATIENT
  Age: 71 Year
  Sex: Female
  Weight: 54.43 kg

DRUGS (5)
  1. EXTRA STRENGTH TYLENOL [Suspect]
  2. EXTRA STRENGTH TYLENOL [Suspect]
     Indication: PAIN
     Dosage: AS NEEDED
  3. TYLENOL (CAPLET) [Suspect]
  4. TYLENOL (CAPLET) [Suspect]
     Indication: PAIN
     Dosage: AS NEEDED
  5. ASPIRIN [Concomitant]

REACTIONS (3)
  - HAEMORRHAGE [None]
  - LACERATION [None]
  - PRODUCT CONTAINER ISSUE [None]
